FAERS Safety Report 4596671-X (Version None)
Quarter: 2005Q1

REPORT INFORMATION
  Report Type: 
  Country: None (occurrence: None)
  Receive Date: 20050228
  Receipt Date: 20040127
  Transmission Date: 20050727
  Serious: No
  Sender: FDA-Public Use
  Company Number: 7279

PATIENT
  Age: 55 Year
  Sex: Male

DRUGS (1)
  1. METHOTREXATE [Suspect]
     Indication: MUSCLE FIBROSIS
     Dates: end: 20030101

REACTIONS (2)
  - HEPATITIS [None]
  - PAIN [None]
